FAERS Safety Report 17992439 (Version 2)
Quarter: 2021Q3

REPORT INFORMATION
  Report Type: Report from Study
  Country: US (occurrence: US)
  Receive Date: 20200708
  Receipt Date: 20210808
  Transmission Date: 20211014
  Serious: Yes (Death, Other)
  Sender: FDA-Public Use
  Company Number: US-ROCHE-2631600

PATIENT
  Age: 71 Year
  Sex: Male
  Weight: 73.4 kg

DRUGS (1)
  1. ATEZOLIZUMAB. [Suspect]
     Active Substance: ATEZOLIZUMAB
     Indication: MESOTHELIOMA MALIGNANT
     Route: 041
     Dates: start: 20190927

REACTIONS (2)
  - Neutrophil count decreased [Unknown]
  - Death [Fatal]

NARRATIVE: CASE EVENT DATE: 20210421
